FAERS Safety Report 20589373 (Version 1)
Quarter: 2022Q1

REPORT INFORMATION
  Report Type: Spontaneous
  Country: US (occurrence: None)
  Receive Date: 20220312
  Receipt Date: 20220312
  Transmission Date: 20220423
  Serious: Yes (Death, Hospitalization)
  Sender: FDA-Public Use
  Company Number: None

PATIENT
  Sex: Female
  Weight: 76.9 kg

DRUGS (1)
  1. DOXIL [Suspect]
     Active Substance: DOXORUBICIN HYDROCHLORIDE

REACTIONS (8)
  - Facial paralysis [None]
  - Constipation [None]
  - White matter lesion [None]
  - Cerebral small vessel ischaemic disease [None]
  - White blood cell count increased [None]
  - Gastroenteritis viral [None]
  - Large intestine perforation [None]
  - Colonic fistula [None]

NARRATIVE: CASE EVENT DATE: 20220305
